FAERS Safety Report 4571944-5 (Version None)
Quarter: 2005Q1

REPORT INFORMATION
  Report Type: 
  Country: None (occurrence: None)
  Receive Date: 20050202
  Receipt Date: 20050117
  Transmission Date: 20050727
  Serious: Yes (Hospitalization)
  Sender: FDA-Public Use
  Company Number: USA050187980

PATIENT
  Age: 61 Year
  Sex: Male

DRUGS (3)
  1. CIALIS [Suspect]
     Indication: ERECTILE DYSFUNCTION
  2. GLUCOPHAGE [Concomitant]
  3. LITHIUM [Concomitant]

REACTIONS (9)
  - ANOREXIA [None]
  - APHAGIA [None]
  - ASTHENIA [None]
  - DIFFICULTY IN WALKING [None]
  - DYSSTASIA [None]
  - FEELING ABNORMAL [None]
  - HYPOKALAEMIA [None]
  - MOTION SICKNESS [None]
  - STOMACH DISCOMFORT [None]
